FAERS Safety Report 23652909 (Version 1)
Quarter: 2024Q1

REPORT INFORMATION
  Report Type: Spontaneous
  Country: US (occurrence: None)
  Receive Date: 20240319
  Receipt Date: 20240319
  Transmission Date: 20240410
  Serious: Yes (unspecified)
  Sender: FDA-Public Use
  Company Number: None

PATIENT
  Age: 81 Year
  Sex: Female
  Weight: 75.5 kg

DRUGS (9)
  1. CEFAZOLIN [Suspect]
     Active Substance: CEFAZOLIN
     Indication: Pneumonia aspiration
     Dosage: FREQUENCY : 3 TIMES A DAY;?
     Route: 041
     Dates: start: 20240229, end: 20240306
  2. CEFAZOLIN [Suspect]
     Active Substance: CEFAZOLIN
     Indication: Empyema
  3. CEFAZOLIN [Suspect]
     Active Substance: CEFAZOLIN
     Indication: Pleural effusion
  4. VANCOMYCIN [Concomitant]
     Active Substance: VANCOMYCIN
     Dates: start: 20240228, end: 20240229
  5. CEFEPIME [Concomitant]
     Active Substance: CEFEPIME HYDROCHLORIDE
     Dates: start: 20240228, end: 20240229
  6. CEFAZOLIN [Concomitant]
     Active Substance: CEFAZOLIN
     Dates: start: 20240229, end: 20240306
  7. MEROPENEM [Concomitant]
     Active Substance: MEROPENEM
     Dates: start: 20240306, end: 20240309
  8. CEFTRIAXONE [Concomitant]
     Active Substance: CEFTRIAXONE\CEFTRIAXONE SODIUM
     Dates: end: 20240308
  9. LINEZOLID [Concomitant]
     Active Substance: LINEZOLID

REACTIONS (1)
  - Drug reaction with eosinophilia and systemic symptoms [None]

NARRATIVE: CASE EVENT DATE: 20240306
